FAERS Safety Report 23361277 (Version 1)
Quarter: 2024Q1

REPORT INFORMATION
  Report Type: Spontaneous
  Country: US (occurrence: US)
  Receive Date: 20240103
  Receipt Date: 20240103
  Transmission Date: 20240410
  Serious: No
  Sender: FDA-Public Use
  Company Number: US-Eisai Medical Research-EC-2023-141344

PATIENT
  Age: 80 Year
  Sex: Male
  Weight: 99.2 kg

DRUGS (7)
  1. LEQEMBI [Suspect]
     Active Substance: LECANEMAB-IRMB
     Indication: Dementia Alzheimer^s type
     Route: 042
     Dates: start: 20230526
  2. NAMENDA [Concomitant]
     Active Substance: MEMANTINE HYDROCHLORIDE
  3. FLOMAX [Concomitant]
     Active Substance: TAMSULOSIN HYDROCHLORIDE
  4. TYLENOL [Concomitant]
     Active Substance: ACETAMINOPHEN
     Indication: Prophylaxis
     Dosage: ONCE, DOSE UNKNOWN
     Route: 065
     Dates: start: 20230526, end: 20230526
  5. TYLENOL [Concomitant]
     Active Substance: ACETAMINOPHEN
     Dosage: ONCE, DOSE UNKNOWN
     Route: 065
     Dates: start: 20230526, end: 20230526
  6. BENADRYL [Concomitant]
     Active Substance: DIPHENHYDRAMINE HYDROCHLORIDE
     Indication: Prophylaxis
     Dosage: ONCE, DOSE UNKNOWN
     Route: 065
     Dates: start: 20230526, end: 20230526
  7. BENADRYL [Concomitant]
     Active Substance: DIPHENHYDRAMINE HYDROCHLORIDE
     Dosage: ONCE, DOSE UNKNOWN
     Route: 065
     Dates: start: 20230526, end: 20230526

REACTIONS (6)
  - Hallucination [Recovered/Resolved]
  - Dizziness [Unknown]
  - Asthenia [Recovered/Resolved]
  - Confusional state [Unknown]
  - Feeling abnormal [Recovered/Resolved]
  - Somnolence [Unknown]

NARRATIVE: CASE EVENT DATE: 20230101
